FAERS Safety Report 6556861-3 (Version None)
Quarter: 2010Q1

REPORT INFORMATION
  Report Type: 
  Country: None (occurrence: None)
  Receive Date: 20100125
  Receipt Date: 20100112
  Transmission Date: 20100710
  Serious: Yes (Other)
  Sender: FDA-Public Use
  Company Number: AE-2009-315

PATIENT
  Age: 68 Year
  Sex: Male
  Weight: 78 kg

DRUGS (11)
  1. FUROSEMIDE [Suspect]
     Dosage: *120MG, BID
  2. DIGOXIN [Suspect]
     Dosage: 0.125MG QD
  3. ACIPIMOX [Suspect]
  4. AMIODARONE HCL [Suspect]
     Dosage: 250MG, BID
  5. ASPIRIN [Suspect]
     Dosage: 200MG, QD
  6. BISOPROLOL [Suspect]
     Dosage: 75MG, QD
  7. EZETIMIBE (EZETROL) [Suspect]
     Dosage: 7.5MG, QD
  8. FUROSEMIDE [Suspect]
     Dosage: 10MG, QD
  9. LANSOPRAZOLE [Suspect]
     Dosage: *80MG, BID.
  10. PERINDOPRIL [Suspect]
     Dosage: 30MG, QD
  11. WARFARIN SODIUM [Concomitant]
     Dosage: 2MG, QD

REACTIONS (16)
  - ATRIAL FIBRILLATION [None]
  - CARDIAC MURMUR [None]
  - DIPLOPIA [None]
  - DISSOCIATION [None]
  - DIZZINESS [None]
  - DYSPNOEA [None]
  - FATIGUE [None]
  - FEELING ABNORMAL [None]
  - HERPES ZOSTER [None]
  - LEFT VENTRICULAR DYSFUNCTION [None]
  - OEDEMA [None]
  - OEDEMA PERIPHERAL [None]
  - PALPITATIONS [None]
  - PARAESTHESIA [None]
  - VENOUS PRESSURE JUGULAR INCREASED [None]
  - VENTRICULAR TACHYCARDIA [None]
